FAERS Safety Report 4740583-5 (Version None)
Quarter: 2005Q3

REPORT INFORMATION
  Report Type: 
  Country: None (occurrence: None)
  Receive Date: 20050801
  Receipt Date: 20050527
  Transmission Date: 20060218
  Serious: Yes (Other)
  Sender: FDA-Public Use
  Company Number: 209642

PATIENT
  Age: 50 Year
  Sex: Female

DRUGS (1)
  1. RITUXAN [Suspect]
     Indication: NON-HODGKIN'S LYMPHOMA
     Dosage: 375 MG,M2, 1/WEEK, INTRAVENOUS
     Route: 042

REACTIONS (3)
  - ARTHRALGIA [None]
  - PYREXIA [None]
  - SERUM SICKNESS [None]
